FAERS Safety Report 4468314-7 (Version None)
Quarter: 2004Q4

REPORT INFORMATION
  Report Type: 
  Country: None (occurrence: None)
  Receive Date: 20041007
  Receipt Date: 20041004
  Transmission Date: 20050328
  Serious: Yes (Hospitalization)
  Sender: FDA-Public Use
  Company Number: NZ-MERCK-0410NZL00029

PATIENT
  Sex: Female

DRUGS (2)
  1. DIAZEPAM [Concomitant]
     Route: 065
  2. ROFECOXIB [Suspect]
     Indication: OSTEOARTHRITIS
     Route: 065
     Dates: start: 20010101, end: 20040201

REACTIONS (2)
  - CEREBROVASCULAR ACCIDENT [None]
  - HEART RATE IRREGULAR [None]
